FAERS Safety Report 24770785 (Version 1)
Quarter: 2024Q4

REPORT INFORMATION
  Report Type: Spontaneous
  Country: CA (occurrence: CA)
  Receive Date: 20241224
  Receipt Date: 20241224
  Transmission Date: 20250115
  Serious: Yes (Hospitalization)
  Sender: ACCORD
  Company Number: None

PATIENT
  Age: 60 Year
  Sex: Female

DRUGS (1)
  1. CAPECITABINE [Suspect]
     Active Substance: CAPECITABINE
     Indication: Product used for unknown indication

REACTIONS (6)
  - Enterocolitis [Unknown]
  - Loss of personal independence in daily activities [Unknown]
  - Physical deconditioning [Unknown]
  - Gastrointestinal tube insertion [Unknown]
  - Physiotherapy [Unknown]
  - Weight decreased [Unknown]
